FAERS Safety Report 7124597-6 (Version None)
Quarter: 2010Q4

REPORT INFORMATION
  Report Type: 
  Country: None (occurrence: None)
  Receive Date: 20101122
  Receipt Date: 20101122
  Transmission Date: 20110411
  Serious: Yes (Life-Threatening, Disabling, Other)
  Sender: FDA-Public Use
  Company Number: None

PATIENT
  Age: 61 Year
  Sex: Male
  Weight: 80.7403 kg

DRUGS (1)
  1. REGLAN [Suspect]
     Indication: GASTROOESOPHAGEAL REFLUX DISEASE
     Dosage: 10MG 4 PO
     Route: 048

REACTIONS (5)
  - AMNESIA [None]
  - BRUXISM [None]
  - DISTURBANCE IN ATTENTION [None]
  - DYSKINESIA [None]
  - SLEEP DISORDER [None]
